FAERS Safety Report 4662796-3 (Version None)
Quarter: 2005Q2

REPORT INFORMATION
  Report Type: 
  Country: None (occurrence: None)
  Receive Date: 20050512
  Receipt Date: 20050421
  Transmission Date: 20051028
  Serious: Yes (Hospitalization)
  Sender: FDA-Public Use
  Company Number: FR_050406284

PATIENT
  Age: 22 Year
  Sex: Female

DRUGS (5)
  1. ZYPREXA [Suspect]
  2. ATARAX (ALPRAZOLAM DUM) [Concomitant]
  3. TERCIAN (CYAMEMAZINE) [Concomitant]
  4. VALIUM [Concomitant]
  5. AERIUS (DESLORATADINE) [Concomitant]

REACTIONS (3)
  - DRUG ABUSER [None]
  - DRUG DEPENDENCE [None]
  - DRUG SCREEN POSITIVE [None]
